FAERS Safety Report 8603603 (Version 8)
Quarter: 2012Q4

REPORT INFORMATION
  Report Type: Report from Study
  Country: CA (occurrence: CA)
  Receive Date: 20120607
  Receipt Date: 20121005
  Transmission Date: 20130627
  Serious: Yes (Hospitalization, Other)
  Sender: FDA-Public Use
  Company Number: CA-ROCHE-1074725

PATIENT
  Age: 68 None
  Sex: Male

DRUGS (10)
  1. ZELBORAF [Suspect]
     Indication: METASTATIC MALIGNANT MELANOMA
     Route: 048
     Dates: start: 201205, end: 20120613
  2. ZELBORAF [Suspect]
     Dosage: Therapy restarted
     Route: 048
     Dates: start: 20120723
  3. METFORMIN [Concomitant]
  4. CARVEDILOL [Concomitant]
  5. TEVA-AMLODIPINE [Concomitant]
  6. CRESTOR [Concomitant]
  7. TYLENOL [Concomitant]
  8. VIAGRA [Concomitant]
  9. ALTACE [Concomitant]
  10. FUROSEMIDE TEVA [Concomitant]

REACTIONS (8)
  - Dehydration [Recovered/Resolved]
  - Blood creatinine increased [Recovered/Resolved]
  - Fatigue [Unknown]
  - Dysgeusia [Not Recovered/Not Resolved]
  - Decreased appetite [Unknown]
  - Paraesthesia [Not Recovered/Not Resolved]
  - Nasopharyngitis [Recovering/Resolving]
  - Disease progression [Not Recovered/Not Resolved]
